FAERS Safety Report 14137815 (Version 1)
Quarter: 2017Q4

REPORT INFORMATION
  Report Type: Spontaneous
  Country: GB (occurrence: GB)
  Receive Date: 20171027
  Receipt Date: 20171027
  Transmission Date: 20180321
  Serious: Yes (Other)
  Sender: FDA-Public Use
  Company Number: GB-SA-2017SA206424

PATIENT
  Age: 55 Year
  Sex: Female

DRUGS (4)
  1. HUMALOG [Concomitant]
     Active Substance: INSULIN LISPRO
     Dosage: DOSES SUGGESTED BY HEALTHCARE PROFESSIONAL
     Route: 065
     Dates: start: 20170803
  2. ABASAGLAR [Concomitant]
     Active Substance: INSULIN GLARGINE
     Dosage: DOSES AS SUGGESTED BY HEALTHCARE PROFESSIONAL
     Route: 065
     Dates: start: 20170803, end: 20170803
  3. SOLOSTAR [Suspect]
     Active Substance: DEVICE
     Dates: start: 20171012
  4. TOUJEO [Suspect]
     Active Substance: INSULIN GLARGINE
     Route: 051
     Dates: start: 20171012

REACTIONS (4)
  - Myalgia [Recovering/Resolving]
  - Malaise [Unknown]
  - Pain in extremity [Recovering/Resolving]
  - Back pain [Recovering/Resolving]

NARRATIVE: CASE EVENT DATE: 20171012
